FAERS Safety Report 13882109 (Version 3)
Quarter: 2018Q1

REPORT INFORMATION
  Report Type: Spontaneous
  Country: RU (occurrence: RU)
  Receive Date: 20170818
  Receipt Date: 20180122
  Transmission Date: 20180508
  Serious: Yes (Other)
  Sender: FDA-Public Use
  Company Number: RU-ASTRAZENECA-2017SE82932

PATIENT
  Age: 74 Year
  Sex: Male
  Weight: 85 kg

DRUGS (8)
  1. VEROSPIRON [Concomitant]
     Active Substance: SPIRONOLACTONE
  2. OMEPRAZOLE. [Concomitant]
     Active Substance: OMEPRAZOLE
  3. ROSUVASTATIN. [Concomitant]
     Active Substance: ROSUVASTATIN
  4. CORDARONE [Concomitant]
     Active Substance: AMIODARONE HYDROCHLORIDE
  5. DIUVER [Concomitant]
     Active Substance: TORSEMIDE
  6. ENALAPRIL [Concomitant]
     Active Substance: ENALAPRIL
  7. BRILINTA [Suspect]
     Active Substance: TICAGRELOR
     Indication: MYOCARDIAL INFARCTION
     Route: 048
     Dates: start: 201704
  8. ACECARDOL [Concomitant]
     Active Substance: ASPIRIN

REACTIONS (3)
  - Hydrothorax [Not Recovered/Not Resolved]
  - Weight decreased [Recovered/Resolved]
  - Dyspnoea exertional [Recovered/Resolved]

NARRATIVE: CASE EVENT DATE: 201704
